FAERS Safety Report 9508011 (Version 1)
Quarter: 2013Q3

REPORT INFORMATION
  Report Type: Spontaneous
  Country: US (occurrence: None)
  Receive Date: 20130906
  Receipt Date: 20130906
  Transmission Date: 20140515
  Serious: No
  Sender: FDA-Public Use
  Company Number: None

PATIENT
  Age: 58 Year
  Sex: Male
  Weight: 116.3 kg

DRUGS (3)
  1. OXALIPLATIN (ELOXATIN) [Suspect]
  2. 5-FLUOROURACIL (5-FU) [Suspect]
  3. BEVACIZUMAB (RHUMAB VEGF) (704865) [Suspect]

REACTIONS (1)
  - Peripheral sensory neuropathy [None]
